FAERS Safety Report 7947013-0 (Version None)
Quarter: 2011Q4

REPORT INFORMATION
  Report Type: 
  Country: None (occurrence: None)
  Receive Date: 20111129
  Receipt Date: 20110805
  Transmission Date: 20120403
  Serious: No
  Sender: FDA-Public Use
  Company Number: US-ASTRAZENECA-2011SE47092

PATIENT
  Age: 57 Year
  Sex: Male
  Weight: 122.5 kg

DRUGS (1)
  1. VIMOVO [Suspect]
     Dosage: ONE TABLET TWO TIMES A DAY
     Route: 048
     Dates: start: 20110303

REACTIONS (2)
  - ARTHROPATHY [None]
  - WEIGHT DECREASED [None]
